FAERS Safety Report 21254727 (Version 1)
Quarter: 2022Q3

REPORT INFORMATION
  Report Type: Spontaneous
  Country: CN (occurrence: CN)
  Receive Date: 20220825
  Receipt Date: 20220825
  Transmission Date: 20221027
  Serious: Yes (Hospitalization, Other)
  Sender: FDA-Public Use
  Company Number: CN-MLMSERVICE-20220815-3729671-2

PATIENT
  Age: 56 Year
  Sex: Male

DRUGS (9)
  1. OMEPRAZOLE [Interacting]
     Active Substance: OMEPRAZOLE
     Indication: Gastrointestinal haemorrhage
     Dosage: 20 MG QD
     Route: 048
     Dates: start: 202010, end: 2020
  2. TACROLIMUS [Interacting]
     Active Substance: TACROLIMUS
     Indication: Glomerulonephritis membranous
     Dosage: 2 MG
     Route: 065
     Dates: start: 2020, end: 2020
  3. TACROLIMUS [Interacting]
     Active Substance: TACROLIMUS
     Dosage: 1.5 MG
     Route: 065
     Dates: start: 202010, end: 2020
  4. SITAGLIPTIN [Concomitant]
     Active Substance: SITAGLIPTIN
     Indication: Product used for unknown indication
     Dosage: UNK
     Route: 065
  5. NIFEDIPINE [Concomitant]
     Active Substance: NIFEDIPINE
     Indication: Product used for unknown indication
     Dosage: 30.0 MG OF NIFEDIPINE PER DAY
     Route: 048
  6. HYDROCHLOROTHIAZIDE [Concomitant]
     Active Substance: HYDROCHLOROTHIAZIDE
     Indication: Product used for unknown indication
     Dosage: UNK
     Route: 065
  7. HEPARIN SODIUM [Concomitant]
     Active Substance: HEPARIN SODIUM
     Indication: Product used for unknown indication
     Dosage: UNK
     Route: 065
  8. METHYLPREDNISOLONE [Concomitant]
     Active Substance: METHYLPREDNISOLONE
     Indication: Glomerulonephritis membranous
     Dosage: 12 MG QD
     Route: 065
     Dates: start: 202010
  9. METFORMIN [Concomitant]
     Active Substance: METFORMIN HYDROCHLORIDE
     Indication: Product used for unknown indication
     Dosage: UNK
     Route: 065

REACTIONS (2)
  - Immunosuppressant drug level increased [Recovered/Resolved]
  - Drug interaction [Recovered/Resolved]

NARRATIVE: CASE EVENT DATE: 20200101
